FAERS Safety Report 4699519-8 (Version None)
Quarter: 2005Q2

REPORT INFORMATION
  Report Type: 
  Country: None (occurrence: None)
  Receive Date: 20050622
  Receipt Date: 20050609
  Transmission Date: 20051028
  Serious: Yes (Death, Hospitalization)
  Sender: FDA-Public Use
  Company Number: 181/110PHAMED

PATIENT
  Age: 40 Day
  Weight: 4.3 kg

DRUGS (2)
  1. PROSTIN E2 [Suspect]
     Indication: LABOUR INDUCTION
     Dosage: 3 MG (3 MG,SINGLE DOSE),VAGINAL
     Route: 067
     Dates: start: 19990813, end: 19990813
  2. OXYTOCIN 10 USP UNITS IN DEXTROSE 5% [Concomitant]

REACTIONS (5)
  - CEREBRAL ISCHAEMIA [None]
  - DRUG EXPOSURE DURING PREGNANCY [None]
  - FORCEPS DELIVERY [None]
  - IATROGENIC INJURY [None]
  - NEONATAL DISORDER [None]
